FAERS Safety Report 9780767 (Version 2)
Quarter: 2014Q1

REPORT INFORMATION
  Report Type: Spontaneous
  Country: AR (occurrence: AR)
  Receive Date: 20131224
  Receipt Date: 20140106
  Transmission Date: 20141002
  Serious: Yes (Hospitalization, Other)
  Sender: FDA-Public Use
  Company Number: PHHY2013AR149949

PATIENT
  Sex: Female

DRUGS (2)
  1. EXELON PATCH [Suspect]
     Indication: MEMORY IMPAIRMENT
     Dosage: 4.6 MG (PATCH 5 CM2), UNK
     Route: 062
     Dates: start: 2008, end: 2009
  2. EXELON PATCH [Suspect]
     Dosage: 9.5 MG, DAILY ( ONE 10 CM2 PATCH, DAILY)
     Route: 062

REACTIONS (4)
  - Ovarian neoplasm [Unknown]
  - Dementia Alzheimer^s type [Unknown]
  - Memory impairment [Unknown]
  - Application site pruritus [Recovering/Resolving]
